FAERS Safety Report 20037143 (Version 2)
Quarter: 2021Q4

REPORT INFORMATION
  Report Type: Spontaneous
  Country: US (occurrence: US)
  Receive Date: 20211105
  Receipt Date: 20211105
  Transmission Date: 20220303
  Serious: Yes (Other)
  Sender: FDA-Public Use
  Company Number: US-REGENERON PHARMACEUTICALS, INC.-2021-97902

PATIENT

DRUGS (4)
  1. EYLEA [Suspect]
     Active Substance: AFLIBERCEPT
     Indication: Neovascular age-related macular degeneration
     Dosage: RIGHT EYE, Q12 WEEKS
     Route: 031
  2. EYLEA [Suspect]
     Active Substance: AFLIBERCEPT
     Dosage: LOADING DOSES, LEFT EYE
     Route: 031
  3. EYLEA [Suspect]
     Active Substance: AFLIBERCEPT
     Dosage: BOTH EYES, Q12 WEEKS THEN Q4WEEKS
     Route: 031
  4. EYLEA [Suspect]
     Active Substance: AFLIBERCEPT
     Dosage: UNK, Q16WEEKS
     Route: 031

REACTIONS (5)
  - Neovascular age-related macular degeneration [Recovered/Resolved]
  - Retinal haemorrhage [Unknown]
  - Subretinal fluid [Recovered/Resolved]
  - Retinal oedema [Recovered/Resolved]
  - Visual acuity reduced [Unknown]
